FAERS Safety Report 11482470 (Version 2)
Quarter: 2015Q3

REPORT INFORMATION
  Report Type: Spontaneous
  Country: US (occurrence: US)
  Receive Date: 20150903
  Receipt Date: 20150903
  Transmission Date: 20151125
  Serious: No
  Sender: FDA-Public Use
  Company Number: US-ELI_LILLY_AND_COMPANY-US201204005154

PATIENT
  Age: 40 Year
  Sex: Female

DRUGS (1)
  1. CYMBALTA [Suspect]
     Active Substance: DULOXETINE HYDROCHLORIDE
     Indication: DEPRESSION
     Dosage: 60 MG, QD
     Dates: start: 2011

REACTIONS (6)
  - Insomnia [Unknown]
  - Depression [Unknown]
  - Hallucination, auditory [Unknown]
  - Anxiety [Unknown]
  - Confusional state [Unknown]
  - Diarrhoea [Unknown]
